FAERS Safety Report 10071219 (Version 1)
Quarter: 2014Q2

REPORT INFORMATION
  Report Type: Report from Study
  Country: NL (occurrence: NL)
  Receive Date: 20140410
  Receipt Date: 20140410
  Transmission Date: 20141212
  Serious: Yes (Other)
  Sender: FDA-Public Use
  Company Number: PHHY2014NL042210

PATIENT
  Age: 73 Year
  Sex: Male

DRUGS (3)
  1. ZOMETA [Suspect]
     Indication: PROSTATE CANCER METASTATIC
     Dosage: 4 MG PER 100 ML, 1X PER 4 WEEKS
     Route: 042
  2. ZOMETA [Suspect]
     Dosage: 4 MG PER 100 ML, 1X PER 4 WEEKS
     Route: 042
     Dates: start: 20091110
  3. ZOMETA [Suspect]
     Dosage: 4 MG PER 100 ML, 1X PER 4 WEEKS
     Route: 042
     Dates: start: 20140203

REACTIONS (4)
  - Transient ischaemic attack [Recovered/Resolved]
  - Speech disorder [Recovered/Resolved]
  - Visual impairment [Recovered/Resolved]
  - Prostatic specific antigen increased [Not Recovered/Not Resolved]
